FAERS Safety Report 18709266 (Version 3)
Quarter: 2023Q1

REPORT INFORMATION
  Report Type: Spontaneous
  Country: NL (occurrence: NL)
  Receive Date: 20210107
  Receipt Date: 20230223
  Transmission Date: 20230418
  Serious: Yes (Hospitalization)
  Sender: FDA-Public Use
  Company Number: NL-APOTEX-2013AP008931

PATIENT
  Age: 53 Year
  Sex: Male
  Weight: 104 kg

DRUGS (1)
  1. AMOXICILLIN\CLAVULANIC ACID [Suspect]
     Active Substance: AMOXICILLIN\CLAVULANIC ACID
     Indication: Erysipelas
     Dosage: 625 MILLIGRAM, 3 TIMES A DAY (500/125 MG)
     Route: 065

REACTIONS (6)
  - Mania [Recovered/Resolved]
  - Agitation [Recovered/Resolved]
  - Language disorder [Recovered/Resolved]
  - Confusional state [Recovered/Resolved]
  - Sleep disorder [Recovered/Resolved]
  - Sexual inhibition [Recovered/Resolved]
